FAERS Safety Report 14511973 (Version 1)
Quarter: 2018Q1

REPORT INFORMATION
  Report Type: Spontaneous
  Country: AU (occurrence: AU)
  Receive Date: 20180209
  Receipt Date: 20180209
  Transmission Date: 20180509
  Serious: Yes (Other)
  Sender: FDA-Public Use
  Company Number: AU-JNJFOC-20180139304

PATIENT
  Sex: Female

DRUGS (4)
  1. SIMPONI [Suspect]
     Active Substance: GOLIMUMAB
     Indication: SPONDYLITIS
     Route: 058
  2. SIMPONI [Suspect]
     Active Substance: GOLIMUMAB
     Indication: EHLERS-DANLOS SYNDROME
     Route: 058
  3. STELARA [Suspect]
     Active Substance: USTEKINUMAB
     Indication: SPONDYLITIS
     Route: 058
     Dates: end: 201711
  4. STELARA [Suspect]
     Active Substance: USTEKINUMAB
     Indication: EHLERS-DANLOS SYNDROME
     Route: 058
     Dates: end: 201711

REACTIONS (2)
  - Ehlers-Danlos syndrome [Unknown]
  - Spondylitis [Unknown]
